FAERS Safety Report 9000951 (Version 1)
Quarter: 2012Q4

REPORT INFORMATION
  Report Type: Spontaneous
  Country: US (occurrence: None)
  Receive Date: 20121226
  Receipt Date: 20121226
  Transmission Date: 20130627
  Serious: Yes (Hospitalization)
  Sender: FDA-Public Use
  Company Number: DSA_61333_2012

PATIENT
  Age: 61 Year
  Sex: Female

DRUGS (2)
  1. METRONIDAZOLE (METRONIDAZOLE) [Suspect]
     Indication: DIVERTICULITIS
     Dosage: (DF Intravenous (not otherwise specified)), (DF Oral)
     Route: 042
  2. CEFUROXIME [Concomitant]

REACTIONS (8)
  - Dizziness [None]
  - Nausea [None]
  - Vomiting [None]
  - Encephalopathy [None]
  - Somnolence [None]
  - Speech disorder [None]
  - Monoplegia [None]
  - Monoplegia [None]
